FAERS Safety Report 10668011 (Version 1)
Quarter: 2014Q4

REPORT INFORMATION
  Report Type: Spontaneous
  Country: US (occurrence: US)
  Receive Date: 20141222
  Receipt Date: 20141222
  Transmission Date: 20150529
  Serious: No
  Sender: FDA-Public Use
  Company Number: US-GLAXOSMITHKLINE-A1058286A

PATIENT

DRUGS (3)
  1. SORIATANE [Suspect]
     Active Substance: ACITRETIN
     Indication: HIDRADENITIS
     Route: 048
  2. HYDROCODONE [Concomitant]
     Active Substance: HYDROCODONE
  3. FINASTERIDE. [Concomitant]
     Active Substance: FINASTERIDE

REACTIONS (3)
  - Pruritus [Unknown]
  - Rash [Recovered/Resolved]
  - Burning sensation [Unknown]
